FAERS Safety Report 8063958 (Version 3)
Quarter: 2013Q2

REPORT INFORMATION
  Report Type: Spontaneous
  Country: US (occurrence: US)
  Receive Date: 20110802
  Receipt Date: 20130626
  Transmission Date: 20140414
  Serious: Yes (Hospitalization, Other)
  Sender: FDA-Public Use
  Company Number: US-BIOGENIDEC-2011BI027945

PATIENT
  Age: 51 Year
  Sex: Female

DRUGS (3)
  1. TYSABRI [Suspect]
     Indication: MULTIPLE SCLEROSIS
     Route: 042
     Dates: start: 20080602, end: 20130502
  2. EFFEXOR [Concomitant]
  3. PROVIGIL [Concomitant]

REACTIONS (4)
  - Osteoarthritis [Not Recovered/Not Resolved]
  - Convulsion [Recovered/Resolved]
  - Psychomotor hyperactivity [Recovered/Resolved]
  - Thermal burn [Not Recovered/Not Resolved]
